APPROVED DRUG PRODUCT: GUAIFENESIN AND DEXTROMETHORPHAN HYDROBROMIDE
Active Ingredient: DEXTROMETHORPHAN HYDROBROMIDE; GUAIFENESIN
Strength: 30MG;600MG
Dosage Form/Route: TABLET, EXTENDED RELEASE;ORAL
Application: A209692 | Product #001
Applicant: AMNEAL PHARMACEUTICALS OF NEW YORK LLC
Approved: Nov 1, 2018 | RLD: No | RS: No | Type: OTC